FAERS Safety Report 18123046 (Version 1)
Quarter: 2020Q3

REPORT INFORMATION
  Report Type: Spontaneous
  Country: GB (occurrence: GB)
  Receive Date: 20200807
  Receipt Date: 20200807
  Transmission Date: 20201103
  Serious: Yes (Life-Threatening, Hospitalization)
  Sender: FDA-Public Use
  Company Number: GB-ACCORD-194482

PATIENT
  Age: 30 Year
  Sex: Female
  Weight: 74.4 kg

DRUGS (29)
  1. FUCIBET [Concomitant]
  2. PARACETAMOL [Concomitant]
     Active Substance: ACETAMINOPHEN
  3. COLECALCIFEROL [Concomitant]
     Active Substance: CHOLECALCIFEROL
  4. RITUXIMAB. [Suspect]
     Active Substance: RITUXIMAB
     Indication: SYSTEMIC LUPUS ERYTHEMATOSUS
     Dosage: 1000MG 25/6/20 AND 1000MG 26/6/20
     Route: 042
     Dates: start: 20200625, end: 20200626
  5. LEVOTHYROXINE. [Concomitant]
     Active Substance: LEVOTHYROXINE
  6. HYDROXYCHLOROQUINE [Concomitant]
     Active Substance: HYDROXYCHLOROQUINE
  7. MEPACRINE/MEPACRINE HYDROCHLORIDE [Concomitant]
  8. NIFEDIPINE. [Concomitant]
     Active Substance: NIFEDIPINE
  9. ACICLOVIR [Concomitant]
     Active Substance: ACYCLOVIR
  10. AMITRIPTYLINE [Concomitant]
     Active Substance: AMITRIPTYLINE
  11. BECLOMETASONE [Concomitant]
     Active Substance: BECLOMETHASONE DIPROPIONATE
  12. OMEPRAZOLE. [Concomitant]
     Active Substance: OMEPRAZOLE
  13. BETAMETHASONE. [Concomitant]
     Active Substance: BETAMETHASONE
  14. ZOPICLONE [Concomitant]
     Active Substance: ZOPICLONE
  15. TACROLIMUS. [Concomitant]
     Active Substance: TACROLIMUS
  16. PREGABALIN. [Concomitant]
     Active Substance: PREGABALIN
  17. DOCUSATE/DOCUSATE CALCIUM/DOCUSATE POTASSIUM/DOCUSATE SODIUM [Concomitant]
     Active Substance: DOCUSATE
  18. SODIUM PIDOLATE [Concomitant]
  19. MYCOPHENOLATE MOFETIL/MYCOPHENOLATE SODIUM/MYCOPHENOLIC ACID [Suspect]
     Active Substance: MYCOPHENOLIC ACID
     Indication: SYSTEMIC LUPUS ERYTHEMATOSUS
     Route: 048
     Dates: start: 20200619
  20. BIOTENE DRY MOUTH [Concomitant]
  21. MORPHINE [Concomitant]
     Active Substance: MORPHINE
  22. FEXOFENADINE [Concomitant]
     Active Substance: FEXOFENADINE HYDROCHLORIDE
  23. GLYCEROL [Concomitant]
     Active Substance: GLYCERIN
  24. TRAMADOL. [Concomitant]
     Active Substance: TRAMADOL
  25. PREDNISOLONE. [Concomitant]
     Active Substance: PREDNISOLONE
  26. SILDENAFIL. [Concomitant]
     Active Substance: SILDENAFIL
  27. DESOGESTREL [Concomitant]
     Active Substance: DESOGESTREL
  28. DERMOVATE [Concomitant]
     Active Substance: CLOBETASOL
  29. FLUOXETINE [Concomitant]
     Active Substance: FLUOXETINE HYDROCHLORIDE

REACTIONS (6)
  - Periorbital swelling [Unknown]
  - Skin exfoliation [Unknown]
  - Malaise [Unknown]
  - Rash macular [Unknown]
  - Stevens-Johnson syndrome [Not Recovered/Not Resolved]
  - Mouth ulceration [Unknown]

NARRATIVE: CASE EVENT DATE: 20200626
